FAERS Safety Report 7009702-4 (Version None)
Quarter: 2010Q3

REPORT INFORMATION
  Report Type: 
  Country: None (occurrence: None)
  Receive Date: 20100923
  Receipt Date: 20100916
  Transmission Date: 20110219
  Serious: Yes (Other)
  Sender: FDA-Public Use
  Company Number: AU-PFIZER INC-2010117654

PATIENT
  Sex: Female

DRUGS (1)
  1. CHAMPIX [Suspect]
     Dosage: UNK

REACTIONS (3)
  - ARTHRALGIA [None]
  - JOINT SWELLING [None]
  - OEDEMA PERIPHERAL [None]
